FAERS Safety Report 23646858 (Version 1)
Quarter: 2024Q1

REPORT INFORMATION
  Report Type: Report from Study
  Country: US (occurrence: US)
  Receive Date: 20240319
  Receipt Date: 20240319
  Transmission Date: 20240410
  Serious: Yes (Hospitalization, Other)
  Sender: FDA-Public Use
  Company Number: US-SANDOZ-SDZ2024US029054

PATIENT
  Age: 45 Year
  Sex: Female

DRUGS (1)
  1. GLATOPA [Suspect]
     Active Substance: GLATIRAMER ACETATE
     Indication: Chest pain
     Dosage: 40 MG/KG,TIW
     Route: 065
     Dates: start: 2011, end: 20240316

REACTIONS (6)
  - Chest pain [Unknown]
  - Flushing [Unknown]
  - Headache [Unknown]
  - Renal aneurysm [Unknown]
  - Cerebrovascular accident [Unknown]
  - Product use in unapproved indication [Unknown]

NARRATIVE: CASE EVENT DATE: 20230301
